FAERS Safety Report 25773930 (Version 1)
Quarter: 2025Q3

REPORT INFORMATION
  Report Type: Report from Study
  Country: CA (occurrence: CA)
  Receive Date: 20250908
  Receipt Date: 20250908
  Transmission Date: 20251021
  Serious: Yes (Hospitalization)
  Sender: CSL BEHRING
  Company Number: CA-BEH-2025217962

PATIENT
  Sex: Male

DRUGS (2)
  1. VELTASSA [Suspect]
     Active Substance: PATIROMER
     Indication: Hyperkalaemia
     Dosage: 8.4 G, QD
     Route: 048
     Dates: start: 2024
  2. VELTASSA [Suspect]
     Active Substance: PATIROMER
     Indication: Chronic kidney disease

REACTIONS (2)
  - Hospitalisation [Unknown]
  - Intentional dose omission [Recovered/Resolved]
